FAERS Safety Report 17021319 (Version 5)
Quarter: 2021Q1

REPORT INFORMATION
  Report Type: Spontaneous
  Country: US (occurrence: US)
  Receive Date: 20191112
  Receipt Date: 20210312
  Transmission Date: 20210419
  Serious: No
  Sender: FDA-Public Use
  Company Number: US-PFIZER INC-2018391375

PATIENT
  Age: 83 Year
  Sex: Female

DRUGS (2)
  1. LYRICA [Suspect]
     Active Substance: PREGABALIN
     Indication: NEURALGIA
     Dosage: 2 DF, DAILY; (SHE IS TAKING 2 PILLS A DAY)
  2. LYRICA [Suspect]
     Active Substance: PREGABALIN
     Indication: NERVE INJURY
     Dosage: 300 MG, 3X/DAY (2 CAPS TID)

REACTIONS (5)
  - Limb discomfort [Unknown]
  - Drug ineffective [Unknown]
  - Malaise [Unknown]
  - Intentional product misuse [Unknown]
  - Overdose [Unknown]
